FAERS Safety Report 5048040-6 (Version None)
Quarter: 2006Q3

REPORT INFORMATION
  Report Type: 
  Country: None (occurrence: None)
  Receive Date: 20060711
  Receipt Date: 20060706
  Transmission Date: 20061208
  Serious: Yes (Hospitalization)
  Sender: FDA-Public Use
  Company Number: TH-MERCK-0607THA00005

PATIENT
  Age: 19 Year
  Sex: Female

DRUGS (1)
  1. SINGULAIR [Suspect]
     Indication: URTICARIA
     Route: 048
     Dates: start: 20060702, end: 20060703

REACTIONS (2)
  - PRURITUS [None]
  - PURPURA [None]
